FAERS Safety Report 6194573-9 (Version None)
Quarter: 2009Q2

REPORT INFORMATION
  Report Type: 
  Country: None (occurrence: None)
  Receive Date: 20090515
  Receipt Date: 20090428
  Transmission Date: 20091009
  Serious: Yes (Death)
  Sender: FDA-Public Use
  Company Number: B0572956A

PATIENT

DRUGS (7)
  1. ALKERAN [Suspect]
     Indication: MULTIPLE MYELOMA
     Dosage: INTRAVENOUS
     Route: 042
  2. STEM CELL TRANSPLANT (FORMULATION UNKNOWN) (STEM CELL TRANSPLANT) [Suspect]
     Indication: MULTIPLE MYELOMA
  3. PHENIRAMINE MALEATE [Concomitant]
  4. GRANULOCYTE COL. STIM. FACT [Concomitant]
  5. CIPROFLOXACIN [Concomitant]
  6. FLUCONAZOLE [Concomitant]
  7. ITRACONAZOLE [Concomitant]

REACTIONS (1)
  - PULMONARY EMBOLISM [None]
